FAERS Safety Report 8662897 (Version 2)
Quarter: 2012Q4

REPORT INFORMATION
  Report Type: 
  Country: IE (occurrence: IE)
  Receive Date: 20120712
  Receipt Date: 20121109
  Transmission Date: 20130627
  Serious: Yes (Other)
  Sender: FDA-Public Use
  Company Number: IE-GILEAD-2012-0056330

PATIENT
  Age: 78 Year
  Sex: Male

DRUGS (15)
  1. RANOLAZINE [Suspect]
     Indication: ANGINA PECTORIS
     Dosage: 500 mg, BID
     Route: 048
     Dates: start: 20120515
  2. RANOLAZINE [Suspect]
     Dosage: 375 mg, BID
     Route: 048
  3. GLUCOPHAGE [Concomitant]
     Indication: TYPE 2 DIABETES MELLITUS
     Dosage: UNK
  4. EXPUTEX [Concomitant]
     Indication: COUGH
  5. ELANTAN [Concomitant]
     Indication: HYPERTENSION
  6. XATRAL [Concomitant]
     Indication: BENIGN PROSTATIC HYPERPLASIA
  7. RISPERDAL [Concomitant]
  8. STILNOCT [Concomitant]
     Indication: INSOMNIA
  9. AVAMYS [Concomitant]
     Indication: RHINITIS ALLERGIC
  10. BECOTIDE [Concomitant]
     Indication: ASTHMA
  11. NEBIVOLOL [Concomitant]
     Indication: HYPERTENSION
  12. PARACETAMOL [Concomitant]
     Indication: PAIN
  13. NU-SEALS ASPIRIN [Concomitant]
     Indication: ANTIPLATELET THERAPY
  14. ESOMEPRAZOLE [Concomitant]
     Indication: DYSPEPSIA
  15. DETRUSITOL [Concomitant]
     Indication: URGE INCONTINENCE

REACTIONS (1)
  - Blood glucose abnormal [Unknown]
